FAERS Safety Report 5865840-0 (Version None)
Quarter: 2008Q3

REPORT INFORMATION
  Report Type: 
  Country: None (occurrence: None)
  Receive Date: 20080829
  Receipt Date: 20080819
  Transmission Date: 20090109
  Serious: No
  Sender: FDA-Public Use
  Company Number: FR-PFIZER INC-2006148835

PATIENT
  Age: 21 Year
  Sex: Female

DRUGS (10)
  1. SOLU-MEDROL [Suspect]
     Dosage: DAILY DOSE:1MG
     Route: 042
     Dates: start: 20060727, end: 20060803
  2. PROZAC [Suspect]
     Route: 048
     Dates: start: 20060728, end: 20060807
  3. TRAMADOL HCL [Suspect]
     Dosage: DAILY DOSE:400MG
     Route: 048
     Dates: start: 20060804, end: 20060807
  4. BROMAZEPAM [Concomitant]
  5. POTASSIUM CHLORIDE [Concomitant]
  6. SODIUM CHLORIDE 0.9% [Concomitant]
  7. OMEPRAZOLE [Concomitant]
  8. ENOXAPARIN SODIUM [Concomitant]
  9. ACETAMINOPHEN [Concomitant]
  10. FLUCONAZOLE [Concomitant]

REACTIONS (1)
  - NO ADVERSE EVENT [None]
